FAERS Safety Report 10516943 (Version 3)
Quarter: 2014Q4

REPORT INFORMATION
  Report Type: Report from Study
  Country: TW (occurrence: TW)
  Receive Date: 20141014
  Receipt Date: 20141106
  Transmission Date: 20150528
  Serious: Yes (Hospitalization, Other)
  Sender: FDA-Public Use
  Company Number: TW-US-EMD SERONO, INC.-7301460

PATIENT
  Sex: Female

DRUGS (3)
  1. REBIF [Suspect]
     Active Substance: INTERFERON BETA-1A
     Dosage: 0.25 ML
  2. REBIF [Suspect]
     Active Substance: INTERFERON BETA-1A
     Dosage: 0.5ML
  3. REBIF [Suspect]
     Active Substance: INTERFERON BETA-1A
     Indication: MULTIPLE SCLEROSIS
     Dosage: 0.1ML

REACTIONS (22)
  - Cough [Unknown]
  - Depression [Unknown]
  - Suicide attempt [Unknown]
  - Dysphagia [Unknown]
  - Mood altered [Unknown]
  - Gait disturbance [Unknown]
  - Headache [Not Recovered/Not Resolved]
  - Hypokinesia [Unknown]
  - Visual impairment [Unknown]
  - Memory impairment [Unknown]
  - Skin odour abnormal [Unknown]
  - Emotional disorder [Unknown]
  - Feeling abnormal [Not Recovered/Not Resolved]
  - Pain in extremity [Unknown]
  - Dizziness [Not Recovered/Not Resolved]
  - Vision blurred [Not Recovered/Not Resolved]
  - Asthenia [Not Recovered/Not Resolved]
  - Activities of daily living impaired [Unknown]
  - Discomfort [Unknown]
  - Insomnia [Unknown]
  - Tremor [Unknown]
  - Inappropriate schedule of drug administration [Unknown]
